FAERS Safety Report 6599079-0 (Version None)
Quarter: 2010Q1

REPORT INFORMATION
  Report Type: 
  Country: None (occurrence: None)
  Receive Date: 20100224
  Receipt Date: 20090814
  Transmission Date: 20100710
  Serious: No
  Sender: FDA-Public Use
  Company Number: US-BRISTOL-MYERS SQUIBB COMPANY-14742142

PATIENT
  Age: 65 Year
  Sex: Female

DRUGS (4)
  1. METFORMIN HCL [Suspect]
  2. LANTUS [Suspect]
     Indication: TYPE 2 DIABETES MELLITUS
     Dosage: 1 DF = 25 UNITS SOLN FOR INJ
     Route: 058
     Dates: start: 20060101
  3. PIOGLITAZONE HCL [Suspect]
  4. JANUMET [Suspect]

REACTIONS (1)
  - MUSCLE SPASMS [None]
